FAERS Safety Report 12773071 (Version 1)
Quarter: 2016Q3

REPORT INFORMATION
  Report Type: Spontaneous
  Country: US (occurrence: US)
  Receive Date: 20160922
  Receipt Date: 20160922
  Transmission Date: 20161109
  Serious: No
  Sender: FDA-Public Use
  Company Number: US-BION-20160235

PATIENT
  Age: 25 Year
  Sex: Male
  Weight: 95.25 kg

DRUGS (2)
  1. ZYRTEC ALLERGY [Suspect]
     Active Substance: CETIRIZINE HYDROCHLORIDE
     Indication: MULTIPLE ALLERGIES
     Dosage: 1 DOSAGE FORM TAKEN DAILY
     Dates: start: 20160601
  2. ZYRTEC [Suspect]
     Active Substance: CETIRIZINE HYDROCHLORIDE
     Indication: MULTIPLE ALLERGIES
     Dosage: 1 DOSAGE FORM DAILY
     Route: 048
     Dates: start: 20160607

REACTIONS (3)
  - Product use issue [Unknown]
  - Drug ineffective [Unknown]
  - Abdominal pain upper [Recovering/Resolving]
